FAERS Safety Report 23108466 (Version 3)
Quarter: 2023Q4

REPORT INFORMATION
  Report Type: Spontaneous
  Country: IT (occurrence: IT)
  Receive Date: 20231026
  Receipt Date: 20231207
  Transmission Date: 20240110
  Serious: Yes (Other)
  Sender: FDA-Public Use
  Company Number: IT-BAYER-2023A149201

PATIENT
  Age: 57 Year
  Sex: Female

DRUGS (7)
  1. REGORAFENIB [Suspect]
     Active Substance: REGORAFENIB
     Indication: Chondrosarcoma
     Dosage: 120 MG, QD
     Route: 048
     Dates: start: 20230530, end: 20231012
  2. HEPARIN [Concomitant]
     Active Substance: HEPARIN SODIUM
     Dosage: UNK
  3. DEXAMETHASONE [Concomitant]
     Active Substance: DEXAMETHASONE
     Indication: Decreased appetite
     Dosage: 64 DROP, BID
  4. DEXAMETHASONE [Concomitant]
     Active Substance: DEXAMETHASONE
     Indication: Fatigue
  5. PANTOPRAZOLE [Concomitant]
     Active Substance: PANTOPRAZOLE
     Dosage: 20 MG 1 CP DAILY
  6. LEVOTHYROXINE [Concomitant]
     Active Substance: LEVOTHYROXINE
     Indication: Hypothyroidism
  7. APIXABAN [Concomitant]
     Active Substance: APIXABAN
     Dosage: UNK, BID

REACTIONS (6)
  - Chondrosarcoma [None]
  - Pulmonary venous thrombosis [Not Recovered/Not Resolved]
  - Soft tissue disorder [None]
  - Off label use [None]
  - Fatigue [Recovered/Resolved]
  - Decreased appetite [Recovered/Resolved]

NARRATIVE: CASE EVENT DATE: 20230530
